FAERS Safety Report 20370386 (Version 1)
Quarter: 2022Q1

REPORT INFORMATION
  Report Type: Spontaneous
  Country: US (occurrence: None)
  Receive Date: 20220123
  Receipt Date: 20220123
  Transmission Date: 20220423
  Serious: Yes (Life-Threatening, Other)
  Sender: FDA-Public Use
  Company Number: None

PATIENT
  Age: 22 Year
  Sex: Female
  Weight: 61.65 kg

DRUGS (2)
  1. PITOCIN [Suspect]
     Active Substance: OXYTOCIN
     Indication: Induced labour
     Dates: start: 20201127, end: 20201128
  2. MISOPROSTOL [Suspect]
     Active Substance: MISOPROSTOL

REACTIONS (4)
  - Maternal exposure during pregnancy [None]
  - Foetal exposure during pregnancy [None]
  - Postpartum haemorrhage [None]
  - Apgar score low [None]

NARRATIVE: CASE EVENT DATE: 20201128
